FAERS Safety Report 21085461 (Version 1)
Quarter: 2022Q3

REPORT INFORMATION
  Report Type: Spontaneous
  Country: US (occurrence: US)
  Receive Date: 20220715
  Receipt Date: 20220715
  Transmission Date: 20221027
  Serious: Yes (Other)
  Sender: FDA-Public Use
  Company Number: US-SUN PHARMACEUTICAL INDUSTRIES LTD-2022R1-344490

PATIENT
  Sex: Female

DRUGS (2)
  1. PAROXETINE [Suspect]
     Active Substance: PAROXETINE
     Indication: Developmental delay
     Dosage: UNK
     Route: 065
     Dates: start: 2013
  2. PAROXETINE [Suspect]
     Active Substance: PAROXETINE
     Indication: Neuropsychiatric symptoms

REACTIONS (1)
  - Electrocardiogram QT prolonged [Unknown]
